FAERS Safety Report 9460600 (Version 1)
Quarter: 2013Q3

REPORT INFORMATION
  Report Type: Spontaneous
  Country: US (occurrence: US)
  Receive Date: 20130815
  Receipt Date: 20130815
  Transmission Date: 20140515
  Serious: No
  Sender: FDA-Public Use
  Company Number: US-PFIZER INC-2013233012

PATIENT
  Age: 74 Year
  Sex: Male
  Weight: 76.64 kg

DRUGS (3)
  1. INLYTA [Suspect]
     Indication: RENAL CANCER
     Dosage: 10 MG, 1X/DAY FOR FIRST THREE DAYS
     Dates: start: 201304, end: 20130806
  2. INLYTA [Suspect]
     Dosage: 5 MG, 1X/DAY FOR  REST FOUR DAYS OF A WEEK
     Dates: start: 201304, end: 20130806
  3. ATENOLOL [Suspect]
     Indication: HYPERTENSION
     Dosage: 25 MG, 1X/DAY (HE WAS SPLITTING 50 MG TABLET INTO HALF)
     Route: 048

REACTIONS (3)
  - Full blood count increased [Unknown]
  - Drug ineffective [Unknown]
  - Hypertension [Unknown]
